FAERS Safety Report 24147923 (Version 1)
Quarter: 2024Q3

REPORT INFORMATION
  Report Type: Spontaneous
  Country: US (occurrence: None)
  Receive Date: 20240729
  Receipt Date: 20240729
  Transmission Date: 20241017
  Serious: Yes (Disabling, Other)
  Sender: ASTRAZENECA
  Company Number: 2024A171588

PATIENT
  Sex: Female

DRUGS (2)
  1. OMEPRAZOLE [Suspect]
     Active Substance: OMEPRAZOLE
     Route: 048
  2. XELJANZ [Suspect]
     Active Substance: TOFACITINIB CITRATE
     Route: 048

REACTIONS (7)
  - Blindness [Unknown]
  - Polyp [Unknown]
  - Colitis ulcerative [Unknown]
  - Therapy non-responder [Unknown]
  - Colitis [Unknown]
  - Gastrooesophageal reflux disease [Unknown]
  - Colorectal adenoma [Unknown]
